FAERS Safety Report 6058124-1 (Version None)
Quarter: 2009Q1

REPORT INFORMATION
  Report Type: 
  Country: None (occurrence: None)
  Receive Date: 20090126
  Receipt Date: 20090112
  Transmission Date: 20090719
  Serious: Yes (Other)
  Sender: FDA-Public Use
  Company Number: GXKR2009AU00663

PATIENT
  Sex: Male

DRUGS (4)
  1. CLOZAPINE [Suspect]
     Indication: SCHIZOPHRENIA
     Dosage: 150 MG, 600 MG
     Dates: end: 19970101
  2. CLOZAPINE [Suspect]
     Indication: SCHIZOPHRENIA
     Dosage: 150 MG, 600 MG
     Dates: start: 19950201
  3. CLONIDINE [Concomitant]
  4. PIMOZIDE (PIMOZIDE) [Concomitant]

REACTIONS (7)
  - AGRANULOCYTOSIS [None]
  - COPROLALIA [None]
  - EXCESSIVE EYE BLINKING [None]
  - GRUNTING [None]
  - OBSESSIVE-COMPULSIVE DISORDER [None]
  - TIC [None]
  - TOURETTE'S DISORDER [None]
